FAERS Safety Report 7609977 (Version 23)
Quarter: 2020Q2

REPORT INFORMATION
  Report Type: Report from Study
  Country: JP (occurrence: JP)
  Receive Date: 20100928
  Receipt Date: 20200619
  Transmission Date: 20200714
  Serious: Yes (Hospitalization)
  Sender: FDA-Public Use
  Company Number: JP-JNJFOC-20100907113

PATIENT
  Age: 59 Year
  Sex: Male

DRUGS (49)
  1. DARUNAVIR [Suspect]
     Active Substance: DARUNAVIR
     Indication: HIV INFECTION
     Route: 048
     Dates: start: 20061111
  2. DARUNAVIR [Suspect]
     Active Substance: DARUNAVIR
     Route: 048
     Dates: start: 20170223
  3. NORVIR [Suspect]
     Active Substance: RITONAVIR
     Route: 048
     Dates: start: 19990819
  4. ZERIT [Concomitant]
     Active Substance: STAVUDINE
     Indication: HIV INFECTION
     Route: 048
     Dates: start: 19970924, end: 19990818
  5. STOCRIN [Concomitant]
     Active Substance: EFAVIRENZ
     Indication: HIV INFECTION
     Route: 048
     Dates: start: 19990819, end: 20040331
  6. VIDEX [Suspect]
     Active Substance: DIDANOSINE
     Route: 048
     Dates: start: 19951206, end: 19960313
  7. NORVIR [Suspect]
     Active Substance: RITONAVIR
     Route: 048
     Dates: start: 20000401, end: 20001228
  8. NORVIR [Suspect]
     Active Substance: RITONAVIR
     Route: 048
     Dates: start: 20060411, end: 20061009
  9. NORVIR [Suspect]
     Active Substance: RITONAVIR
     Route: 048
     Dates: start: 20061010
  10. NORVIR [Suspect]
     Active Substance: RITONAVIR
     Route: 048
     Dates: start: 20110608
  11. INVIRASE [Concomitant]
     Active Substance: SAQUINAVIR MESYLATE
     Indication: HIV INFECTION
     Route: 048
     Dates: start: 19990819, end: 20001228
  12. MK-0518 [Concomitant]
     Active Substance: RALTEGRAVIR POTASSIUM
     Indication: HIV INFECTION
     Route: 065
     Dates: start: 20070807, end: 20080331
  13. URSO [Concomitant]
     Active Substance: URSODIOL
     Route: 048
     Dates: start: 20150826
  14. PARIET [Concomitant]
     Active Substance: RABEPRAZOLE SODIUM
     Route: 048
     Dates: start: 20120401, end: 20130821
  15. LANOCONAZOLE [Concomitant]
     Active Substance: LANOCONAZOLE
     Indication: TINEA INFECTION
     Route: 065
     Dates: start: 20170223
  16. VIDEX [Suspect]
     Active Substance: DIDANOSINE
     Route: 048
     Dates: start: 20001229, end: 20060410
  17. ZERIT [Concomitant]
     Active Substance: STAVUDINE
     Route: 048
     Dates: start: 20001229, end: 20060410
  18. PROZEI [Concomitant]
     Active Substance: AMPRENAVIR
     Indication: HIV INFECTION
     Route: 048
     Dates: start: 20040401, end: 20051110
  19. ZIAGEN [Concomitant]
     Active Substance: ABACAVIR SULFATE
     Indication: HIV INFECTION
     Route: 048
     Dates: start: 19990819, end: 20001228
  20. CROSS EIGHT M [Concomitant]
     Active Substance: ANTIHEMOPHILIC FACTOR HUMAN
     Indication: FACTOR VIII DEFICIENCY
     Dates: start: 20080401
  21. PARIET [Concomitant]
     Active Substance: RABEPRAZOLE SODIUM
     Indication: GASTRITIS
     Route: 048
     Dates: start: 20080924, end: 20120331
  22. NORVIR [Suspect]
     Active Substance: RITONAVIR
     Indication: HIV INFECTION
     Route: 048
     Dates: start: 19961218, end: 19970924
  23. INTELENCE [Suspect]
     Active Substance: ETRAVIRINE
     Indication: HIV INFECTION
     Dosage: ALSO REPORTED AS 4 DF 1 PER 1 DAY
     Route: 048
     Dates: start: 20081011
  24. LEXIVA [Concomitant]
     Active Substance: FOSAMPRENAVIR CALCIUM
     Indication: HIV INFECTION
     Route: 048
     Dates: start: 20051111, end: 20060410
  25. VIRACEPT [Concomitant]
     Active Substance: NELFINAVIR MESYLATE
     Indication: HIV INFECTION
     Route: 048
     Dates: start: 19970924, end: 19990818
  26. LIVACT [Concomitant]
     Active Substance: AMINO ACIDS, SOURCE UNSPECIFIED
     Indication: LIVER DISORDER
     Dosage: 4.5 G
     Route: 048
     Dates: start: 20090803
  27. MUCODYNE [Concomitant]
     Active Substance: CARBOCYSTEINE
     Route: 048
     Dates: start: 20170223, end: 20181225
  28. ADYNOVATE [Concomitant]
     Active Substance: ANTIHEMOPHILIC FACTOR, HUMAN RECOMBINANT
     Indication: FACTOR VIII DEFICIENCY
     Route: 065
     Dates: start: 20181128
  29. NORVIR [Suspect]
     Active Substance: RITONAVIR
     Route: 048
     Dates: start: 20061010
  30. ISENTRESS [Suspect]
     Active Substance: RALTEGRAVIR POTASSIUM
     Indication: HIV INFECTION
     Route: 048
     Dates: start: 20080401
  31. TIPRANAVIR [Concomitant]
     Active Substance: TIPRANAVIR
     Indication: HIV INFECTION
     Route: 065
     Dates: start: 20060411, end: 20061110
  32. TRUVADA [Concomitant]
     Active Substance: EMTRICITABINE\TENOFOVIR DISOPROXIL FUMARATE
     Indication: HIV INFECTION
     Route: 048
     Dates: start: 20060411, end: 20170222
  33. RETROVIR [Concomitant]
     Active Substance: ZIDOVUDINE
     Indication: HIV INFECTION
     Route: 048
     Dates: start: 19960313, end: 19970924
  34. MUCODYNE [Concomitant]
     Active Substance: CARBOCYSTEINE
     Route: 048
     Dates: start: 20190227
  35. VESICARE [Concomitant]
     Active Substance: SOLIFENACIN SUCCINATE
     Route: 048
     Dates: start: 20191030
  36. KALETRA [Suspect]
     Active Substance: LOPINAVIR\RITONAVIR
     Indication: HIV INFECTION
     Route: 048
     Dates: start: 20001229, end: 20060410
  37. VIDEX [Suspect]
     Active Substance: DIDANOSINE
     Indication: HIV INFECTION
     Route: 048
     Dates: start: 19951018, end: 19951206
  38. NORVIR [Suspect]
     Active Substance: RITONAVIR
     Route: 048
     Dates: start: 20080401
  39. DESCOVY [Suspect]
     Active Substance: EMTRICITABINE\TENOFOVIR ALAFENAMIDE FUMARATE
     Indication: HIV INFECTION
     Route: 048
     Dates: start: 20170223
  40. EPIVIR [Concomitant]
     Active Substance: LAMIVUDINE
     Indication: HIV INFECTION
     Route: 048
     Dates: start: 19970924, end: 19990818
  41. VIDEX [Suspect]
     Active Substance: DIDANOSINE
     Route: 048
     Dates: start: 19960724, end: 19970924
  42. CROSS EIGHT M [Concomitant]
     Active Substance: ANTIHEMOPHILIC FACTOR HUMAN
     Dates: end: 20100804
  43. ADVATE [Concomitant]
     Active Substance: ANTIHEMOPHILIC FACTOR, HUMAN RECOMBINANT
     Indication: FACTOR VIII DEFICIENCY
     Dosage: 1000UT
     Route: 042
     Dates: start: 20100805
  44. ADVATE [Concomitant]
     Active Substance: ANTIHEMOPHILIC FACTOR, HUMAN RECOMBINANT
     Route: 042
     Dates: start: 20140401
  45. PARIET [Concomitant]
     Active Substance: RABEPRAZOLE SODIUM
     Route: 048
     Dates: start: 20140319
  46. MUCODYNE [Concomitant]
     Active Substance: CARBOCYSTEINE
     Indication: BRONCHITIS CHRONIC
     Route: 048
     Dates: start: 20090617, end: 20150224
  47. VIDEX [Suspect]
     Active Substance: DIDANOSINE
     Route: 048
     Dates: start: 19960313, end: 19970924
  48. INTELENCE [Suspect]
     Active Substance: ETRAVIRINE
     Dosage: ALSO REPORTED AS 4 DF 1 PER 1 DAY
     Route: 048
     Dates: start: 20170223
  49. URSO [Concomitant]
     Active Substance: URSODIOL
     Indication: LIVER DISORDER
     Route: 048
     Dates: start: 20070401, end: 20150224

REACTIONS (7)
  - Osteoporosis [Not Recovered/Not Resolved]
  - Anaemia [Not Recovered/Not Resolved]
  - Hyperbilirubinaemia [Recovered/Resolved]
  - Hepatic cirrhosis [Not Recovered/Not Resolved]
  - Hepatocellular carcinoma [Not Recovered/Not Resolved]
  - Pyelonephritis [Recovered/Resolved]
  - Dyslipidaemia [Recovered/Resolved]

NARRATIVE: CASE EVENT DATE: 2006
